FAERS Safety Report 8946777 (Version 1)
Quarter: 2012Q4

REPORT INFORMATION
  Report Type: 
  Country: US (occurrence: US)
  Receive Date: 20121204
  Receipt Date: 20121204
  Transmission Date: 20130627
  Serious: No
  Sender: FDA-Public Use
  Company Number: US-AMGEN-USASP2012069437

PATIENT
  Age: 15 Year
  Sex: Female
  Weight: 58.05 kg

DRUGS (5)
  1. ENBREL [Suspect]
     Indication: PSORIASIS
     Dosage: 50 mg, 2 times/wk
     Dates: start: 20120911
  2. LOESTRIN FE 1/20 [Concomitant]
     Dosage: 1-20, mg/mcg, qd
     Route: 048
  3. KENALOG [Concomitant]
     Dosage: UNK UNK, bid
     Route: 061
     Dates: start: 20111205
  4. CLOBETASOL 0.05% [Concomitant]
     Dosage: 0.05%, bid
     Route: 061
     Dates: start: 20111006
  5. LUXIQ [Concomitant]
     Dosage: 0.12%, 8hs
     Route: 061

REACTIONS (1)
  - Incorrect dose administered [Recovered/Resolved]
